FAERS Safety Report 9338027 (Version 2)
Quarter: 2013Q2

REPORT INFORMATION
  Report Type: Spontaneous
  Country: US (occurrence: US)
  Receive Date: 20130610
  Receipt Date: 20130621
  Transmission Date: 20140414
  Serious: Yes (Hospitalization, Other)
  Sender: FDA-Public Use
  Company Number: US-AMGEN-USASP2013040011

PATIENT
  Age: 71 Year
  Sex: Female
  Weight: 113.2 kg

DRUGS (17)
  1. EPOGEN [Suspect]
     Indication: ANAEMIA
     Dosage: 28000 UNIT, Q3WK
     Route: 042
     Dates: start: 2010
  2. TOPROL [Concomitant]
     Dosage: 50 MG, QHS
     Route: 048
     Dates: start: 20130215
  3. NORVASC [Concomitant]
     Dosage: 10 MG, QD
     Route: 048
     Dates: start: 20130215
  4. ASPIRIN [Concomitant]
     Dosage: 81 MG, QHS
     Route: 048
     Dates: start: 20130215
  5. NOVOLOG [Concomitant]
     Dosage: 40 MG, BEFORE BREAKFAST
     Route: 058
     Dates: start: 20130215
  6. NOVOLOG [Concomitant]
     Dosage: 40 MG, BEFORE DINNER OR SUPPER
     Route: 058
     Dates: start: 20130215
  7. SERTRALINE [Concomitant]
     Dosage: 100 MG, QD AS DIRECTED
     Route: 048
     Dates: start: 20130215
  8. LOVAZA [Concomitant]
     Dosage: UNK BEFORE BREAKFAST
     Dates: start: 20130215
  9. LOVAZA [Concomitant]
     Dosage: UNK
     Dates: start: 20130215
  10. IMURAN                             /00001501/ [Concomitant]
     Dosage: 50 MG, QD
     Route: 048
     Dates: start: 20130215
  11. TACROLIMUS [Concomitant]
     Dosage: 1.5 MG, Q12H
     Route: 048
     Dates: start: 20130215
  12. ATORVASTATIN CALCIUM [Concomitant]
     Dosage: 40 MG, QHS
     Route: 048
     Dates: start: 20130215
  13. SYNTHROID [Concomitant]
     Dosage: 25 MUG, QD AS DIRECTED
     Route: 048
     Dates: start: 20130215
  14. VITAMIN C                          /00008001/ [Concomitant]
     Dosage: 1000 MG, UNK
     Route: 048
     Dates: start: 20130215
  15. RENVELA [Concomitant]
     Dosage: 800 MG 4, WITH MEALS UNK
     Route: 048
     Dates: start: 20130215
  16. NEPHRO [Concomitant]
     Dosage: UNK, QD
     Dates: start: 20130215
  17. ZEMPLAR [Concomitant]
     Indication: BLOOD PARATHYROID HORMONE
     Dosage: UNK UNK, 3 TIMES/WK
     Route: 042

REACTIONS (3)
  - Haemoglobin decreased [Unknown]
  - Drug ineffective [Unknown]
  - Haematocrit decreased [Unknown]
